FAERS Safety Report 13637610 (Version 3)
Quarter: 2017Q3

REPORT INFORMATION
  Report Type: Spontaneous
  Country: US (occurrence: US)
  Receive Date: 20170609
  Receipt Date: 20170720
  Transmission Date: 20171127
  Serious: Yes (Other)
  Sender: FDA-Public Use
  Company Number: US-PFIZER INC-2017250235

PATIENT
  Age: 45 Year
  Sex: Female

DRUGS (1)
  1. DOXORUBICIN HCL [Suspect]
     Active Substance: DOXORUBICIN HYDROCHLORIDE
     Indication: OVARIAN CANCER
     Dosage: 40 MG/M2, CYCLIC (PEGYLATED LIPOSOMAL DOXORUBICIN, 115 CYCLES, CUMULATIVE DOSE OF 4600MG/M2)

REACTIONS (3)
  - Oedema peripheral [Unknown]
  - Pericardial effusion [Recovering/Resolving]
  - Lethargy [Unknown]
